FAERS Safety Report 6723380-0 (Version None)
Quarter: 2010Q2

REPORT INFORMATION
  Report Type: 
  Country: None (occurrence: None)
  Receive Date: 20100513
  Receipt Date: 20090922
  Transmission Date: 20101027
  Serious: No
  Sender: FDA-Public Use
  Company Number: US-ABBOTT-09P-163-0599343-00

PATIENT
  Sex: Female

DRUGS (4)
  1. GENGRAF [Suspect]
     Indication: APLASTIC ANAEMIA
  2. GENGRAF [Suspect]
  3. EXJADE [Suspect]
     Indication: IRON OVERLOAD
  4. APOTEX [Concomitant]
     Indication: DRUG USE FOR UNKNOWN INDICATION

REACTIONS (1)
  - BLOOD CREATININE INCREASED [None]
